FAERS Safety Report 4725009-X (Version None)
Quarter: 2005Q3

REPORT INFORMATION
  Report Type: 
  Country: None (occurrence: None)
  Receive Date: 20050722
  Receipt Date: 20050711
  Transmission Date: 20060218
  Serious: Yes (Life-Threatening, Hospitalization)
  Sender: FDA-Public Use
  Company Number: 2005RL000069

PATIENT
  Age: 73 Year
  Sex: Female

DRUGS (6)
  1. PROPAFENONE HCL [Suspect]
     Indication: ATRIAL FIBRILLATION
     Dosage: 300 MG, X1; PO, 150 MG, X1; PO
     Route: 048
  2. PROPAFENONE HCL [Suspect]
     Indication: ATRIAL FIBRILLATION
     Dosage: 300 MG, X1; PO, 150 MG, X1; PO
     Route: 048
  3. PROPRANOLOL [Suspect]
     Indication: ATRIAL FIBRILLATION
     Dosage: 4 MG, UNK; IV
     Route: 042
  4. PROCAINAMIDE [Suspect]
     Indication: ATRIAL FIBRILLATION
     Dosage: 1000 MG, X1; IV, 200 MG, X1; IV
     Route: 042
  5. PROCAINAMIDE [Suspect]
     Indication: ATRIAL FIBRILLATION
     Dosage: 1000 MG, X1; IV, 200 MG, X1; IV
     Route: 042
  6. ASPIRIN [Concomitant]

REACTIONS (14)
  - ATRIAL FIBRILLATION [None]
  - BLOOD PRESSURE IMMEASURABLE [None]
  - CARDIOTOXICITY [None]
  - DYSPNOEA [None]
  - FALL [None]
  - FLUSHING [None]
  - HYPOTENSION [None]
  - LOSS OF CONSCIOUSNESS [None]
  - MALAISE [None]
  - NAUSEA [None]
  - SKIN WARM [None]
  - THERAPEUTIC AGENT TOXICITY [None]
  - VENTRICULAR TACHYCARDIA [None]
  - VOMITING [None]
